FAERS Safety Report 7850282-9 (Version None)
Quarter: 2011Q4

REPORT INFORMATION
  Report Type: 
  Country: None (occurrence: None)
  Receive Date: 20111024
  Receipt Date: 20111007
  Transmission Date: 20120403
  Serious: Yes (Other)
  Sender: FDA-Public Use
  Company Number: 1000024743

PATIENT
  Age: 40 Year
  Sex: Male

DRUGS (1)
  1. ESCITALOPRAM OXALATE [Suspect]
     Indication: BURNOUT SYNDROME
     Dosage: 10 MG (10 MG, 1 IN 1 D)

REACTIONS (6)
  - OFF LABEL USE [None]
  - DIZZINESS [None]
  - DRUG WITHDRAWAL CONVULSIONS [None]
  - PARAESTHESIA [None]
  - DRUG WITHDRAWAL SYNDROME [None]
  - DISTURBANCE IN ATTENTION [None]
